FAERS Safety Report 8457751-1 (Version None)
Quarter: 2012Q2

REPORT INFORMATION
  Report Type: 
  Country: None (occurrence: None)
  Receive Date: 20120615
  Receipt Date: 20120615
  Transmission Date: 20120825
  Serious: Yes (Other)
  Sender: FDA-Public Use
  Company Number: None

PATIENT
  Age: 25 Year
  Sex: Female
  Weight: 108.8633 kg

DRUGS (1)
  1. YAZ [Suspect]
     Indication: CONTRACEPTION
     Dosage: 28 DAYS A MONTH PO
     Route: 048
     Dates: start: 20011001, end: 20021001

REACTIONS (1)
  - GALLBLADDER DISORDER [None]
